FAERS Safety Report 8501370 (Version 2)
Quarter: 2012Q4

REPORT INFORMATION
  Report Type: 
  Country: US (occurrence: US)
  Receive Date: 20120410
  Receipt Date: 20121127
  Transmission Date: 20130627
  Serious: No
  Sender: FDA-Public Use
  Company Number: US-B.I. PHARMACEUTICALS,INC./RIDGEFIELD-2012-BP-06226BP

PATIENT
  Age: 84 None
  Sex: Male

DRUGS (9)
  1. PRADAXA [Suspect]
     Indication: ATRIAL FIBRILLATION
     Dosage: 300 mg
     Route: 048
     Dates: start: 201110
  2. ARICEPT [Concomitant]
     Indication: DEMENTIA ALZHEIMER^S TYPE
     Dosage: 10 mg
     Route: 048
     Dates: start: 201104
  3. ARICEPT [Concomitant]
     Indication: VASCULAR DEMENTIA
  4. CRESTOR [Concomitant]
     Indication: BLOOD CHOLESTEROL INCREASED
     Dosage: 5 mg
     Route: 048
     Dates: start: 201110
  5. METROPROLOL XR [Concomitant]
     Indication: HYPERTENSION
     Dosage: 100 mg
     Route: 048
     Dates: start: 1997
  6. NAMENDA [Concomitant]
     Indication: DEMENTIA ALZHEIMER^S TYPE
     Dosage: 20 mg
     Route: 048
     Dates: start: 201104
  7. NAMENDA [Concomitant]
     Indication: VASCULAR DEMENTIA
  8. VERAPAMIL [Concomitant]
     Indication: ATRIAL FIBRILLATION
     Dosage: 360 mg
     Route: 048
     Dates: start: 1992
  9. VERAPAMIL [Concomitant]
     Indication: HYPERTENSION

REACTIONS (3)
  - Gingival infection [Not Recovered/Not Resolved]
  - Fall [Not Recovered/Not Resolved]
  - Balance disorder [Not Recovered/Not Resolved]
